FAERS Safety Report 14294345 (Version 6)
Quarter: 2018Q4

REPORT INFORMATION
  Report Type: Spontaneous
  Country: SE (occurrence: SE)
  Receive Date: 20171217
  Receipt Date: 20181009
  Transmission Date: 20190204
  Serious: Yes (Hospitalization, Other)
  Sender: FDA-Public Use
  Company Number: SE-ALVOGEN-2017-ALVOGEN-094571

PATIENT
  Age: 55 Year
  Sex: Female

DRUGS (4)
  1. VENLAFAXINE HYDROCHLORIDE. [Suspect]
     Active Substance: VENLAFAXINE HYDROCHLORIDE
     Indication: PRODUCT USED FOR UNKNOWN INDICATION
     Route: 065
  2. ATENOLOL. [Suspect]
     Active Substance: ATENOLOL
     Indication: PRODUCT USED FOR UNKNOWN INDICATION
     Route: 065
  3. PARACETAMOL [Suspect]
     Active Substance: ACETAMINOPHEN
     Indication: PRODUCT USED FOR UNKNOWN INDICATION
     Route: 065
  4. AMLODIPINE BESILATE [Suspect]
     Active Substance: AMLODIPINE BESYLATE
     Indication: PRODUCT USED FOR UNKNOWN INDICATION
     Route: 065

REACTIONS (11)
  - Overdose [Unknown]
  - Suicide attempt [Recovered/Resolved with Sequelae]
  - Hypotension [Recovering/Resolving]
  - Pneumonia [Recovered/Resolved with Sequelae]
  - Toxicity to various agents [Recovered/Resolved with Sequelae]
  - Shock [Recovered/Resolved]
  - Left ventricular dysfunction [Recovered/Resolved]
  - Delirium [Recovered/Resolved with Sequelae]
  - Heart rate decreased [Recovering/Resolving]
  - Blood lactic acid increased [Unknown]
  - Loss of consciousness [Recovered/Resolved]
